FAERS Safety Report 17701192 (Version 1)
Quarter: 2020Q2

REPORT INFORMATION
  Report Type: Spontaneous
  Country: US (occurrence: US)
  Receive Date: 20200424
  Receipt Date: 20200424
  Transmission Date: 20200714
  Serious: No
  Sender: FDA-Public Use
  Company Number: US-BIOGEN-2019BI00785761

PATIENT
  Sex: Female

DRUGS (2)
  1. TECFIDERA [Suspect]
     Active Substance: DIMETHYL FUMARATE
     Indication: MULTIPLE SCLEROSIS
     Route: 048
     Dates: start: 20180808
  2. TECFIDERA [Suspect]
     Active Substance: DIMETHYL FUMARATE

REACTIONS (7)
  - Flushing [Recovered/Resolved]
  - Vertigo [Unknown]
  - Dysphemia [Unknown]
  - Anaemia [Recovered/Resolved]
  - Eye allergy [Unknown]
  - Balance disorder [Unknown]
  - Hypertension [Unknown]
